FAERS Safety Report 16052162 (Version 2)
Quarter: 2019Q2

REPORT INFORMATION
  Report Type: Report from Study
  Country: JP (occurrence: JP)
  Receive Date: 20190308
  Receipt Date: 20190503
  Transmission Date: 20190711
  Serious: Yes (Death)
  Sender: FDA-Public Use
  Company Number: JP-JT-EVA201800306KERYXP-002

PATIENT
  Age: 83 Year
  Sex: Male
  Weight: 42 kg

DRUGS (16)
  1. RIONA [Suspect]
     Active Substance: FERRIC CITRATE ANHYDROUS
     Dosage: 2250 MILLIGRAM; QD
     Route: 048
     Dates: start: 20170218, end: 20180219
  2. CALCITRIOL. [Concomitant]
     Active Substance: CALCITRIOL
     Indication: HYPERPARATHYROIDISM SECONDARY
     Dosage: 0.5 MICROGRAM, QD
     Route: 042
     Dates: end: 20180219
  3. TRAZENTA [Concomitant]
     Active Substance: LINAGLIPTIN
     Dosage: 5 MILLIGRAM, QD
     Route: 048
     Dates: end: 20180219
  4. RIONA [Suspect]
     Active Substance: FERRIC CITRATE ANHYDROUS
     Indication: HYPERPHOSPHATAEMIA
     Dosage: 1500 MILLIGRAM, QD
     Route: 048
     Dates: start: 20161126, end: 20170217
  5. NESP [Concomitant]
     Active Substance: DARBEPOETIN ALFA
     Dosage: 10 MICROGRAM, 12 DOSES IN 3 MONTHS
     Route: 042
  6. NESP [Concomitant]
     Active Substance: DARBEPOETIN ALFA
     Dosage: 40 MICROGRAM, 11 DOSES IN 12 MONTHS
     Route: 042
  7. BAYASPIRIN [Concomitant]
     Active Substance: ASPIRIN
     Indication: PROPHYLAXIS
     Dosage: 100 MILLIGRAM, QD
     Route: 048
     Dates: end: 20180219
  8. MIYA-BM [Concomitant]
     Active Substance: CLOSTRIDIUM BUTYRICUM SPORES STRAIN M-55
     Indication: PROPHYLAXIS
     Dosage: 6 DOSAGE FORM, QD
     Route: 048
     Dates: end: 20180219
  9. NESP [Concomitant]
     Active Substance: DARBEPOETIN ALFA
     Indication: NEPHROGENIC ANAEMIA
     Dosage: 60 MICROGRAM, 12 DOSES IN 3 MONTHS
     Route: 042
  10. AMOBAN [Concomitant]
     Active Substance: ZOPICLONE
     Indication: PROPHYLAXIS
     Dosage: 10 MILLIGRAM, QD
     Route: 048
     Dates: end: 20180219
  11. FESIN                              /00023550/ [Concomitant]
     Active Substance: IRON SUCROSE
     Indication: MINERAL SUPPLEMENTATION
     Dosage: 40 MILLIGRAM, 11 DOSES IN 3 MONTHS
     Route: 042
  12. ALLOPURINOL. [Concomitant]
     Active Substance: ALLOPURINOL
     Indication: PROPHYLAXIS
     Dosage: 50 MILLIGRAM, QD
     Route: 048
     Dates: end: 20180219
  13. CALONAL [Concomitant]
     Active Substance: ACETAMINOPHEN
     Indication: PROPHYLAXIS
     Dosage: 1200 MILLIGRAM, QD
     Route: 048
     Dates: end: 20180219
  14. NESP [Concomitant]
     Active Substance: DARBEPOETIN ALFA
     Dosage: 40 MICROGRAM, 24 DOSES IN 6 MONTHS
     Route: 042
  15. ARTIST [Concomitant]
     Active Substance: CARVEDILOL
     Indication: PROPHYLAXIS
     Dosage: 20 MILLIGRAM, QD
     Route: 048
     Dates: end: 20180219
  16. PLAVIX [Concomitant]
     Active Substance: CLOPIDOGREL BISULFATE
     Indication: PROPHYLAXIS
     Dosage: 75 MILLIGRAM, QD
     Route: 048
     Dates: end: 20180219

REACTIONS (1)
  - Femoral neck fracture [Fatal]

NARRATIVE: CASE EVENT DATE: 20180219
